FAERS Safety Report 22800928 (Version 8)
Quarter: 2025Q1

REPORT INFORMATION
  Report Type: Report from Study
  Country: US (occurrence: US)
  Receive Date: 20230808
  Receipt Date: 20250214
  Transmission Date: 20250408
  Serious: Yes (Other)
  Sender: ROCHE
  Company Number: US-ROCHE-3400719

PATIENT
  Age: 79 Year
  Sex: Female
  Weight: 58.06 kg

DRUGS (5)
  1. ACTEMRA [Suspect]
     Active Substance: TOCILIZUMAB
     Indication: Rheumatoid arthritis
     Route: 058
     Dates: start: 202307
  2. PREDNISONE [Concomitant]
     Active Substance: PREDNISONE
  3. NEXIUM [Concomitant]
     Active Substance: ESOMEPRAZOLE MAGNESIUM
  4. LIPITOR [Concomitant]
     Active Substance: ATORVASTATIN CALCIUM
  5. AMLODIPINE [Concomitant]
     Active Substance: AMLODIPINE BESYLATE

REACTIONS (6)
  - Visual impairment [Not Recovered/Not Resolved]
  - Gait disturbance [Recovering/Resolving]
  - Hypoacusis [Unknown]
  - Blindness [Unknown]
  - Eye infection [Unknown]
  - Glaucoma [Unknown]
